FAERS Safety Report 20994635 (Version 1)
Quarter: 2022Q2

REPORT INFORMATION
  Report Type: Spontaneous
  Country: DE (occurrence: DE)
  Receive Date: 20220622
  Receipt Date: 20220622
  Transmission Date: 20220720
  Serious: Yes (Hospitalization, Other)
  Sender: FDA-Public Use
  Company Number: DE-Gedeon Richter Plc.-2021_GR_005011

PATIENT
  Sex: Female
  Weight: 82 kg

DRUGS (7)
  1. CARIPRAZINE HYDROCHLORIDE [Suspect]
     Active Substance: CARIPRAZINE HYDROCHLORIDE
     Indication: Schizophrenia
     Dosage: 1.5 MG, QD
     Route: 048
  2. CARIPRAZINE HYDROCHLORIDE [Suspect]
     Active Substance: CARIPRAZINE HYDROCHLORIDE
     Dosage: 3 UNK
     Route: 048
  3. CARIPRAZINE HYDROCHLORIDE [Suspect]
     Active Substance: CARIPRAZINE HYDROCHLORIDE
     Dosage: 6 MG, QD
     Route: 048
     Dates: start: 20201007, end: 20201017
  4. CLOZAPINE [Interacting]
     Active Substance: CLOZAPINE
     Indication: Schizophrenia
     Dosage: VARIATION OF DOSES 100 TO 375 MG/DIE
     Route: 048
     Dates: start: 2014
  5. CLOZAPINE [Interacting]
     Active Substance: CLOZAPINE
     Dosage: 350 MG, QD
     Route: 048
  6. CLOZAPINE [Interacting]
     Active Substance: CLOZAPINE
     Dosage: 425 MG, QD
     Route: 048
     Dates: start: 20201014
  7. CLOZAPINE [Interacting]
     Active Substance: CLOZAPINE
     Dosage: 400 MG, QD
     Route: 048

REACTIONS (5)
  - Pleurothotonus [Recovered/Resolved]
  - Electroencephalogram abnormal [Unknown]
  - Drug interaction [Recovered/Resolved]
  - Extrapyramidal disorder [Recovered/Resolved]
  - Schizophrenia [Recovered/Resolved]

NARRATIVE: CASE EVENT DATE: 20201017
